FAERS Safety Report 9608344 (Version 3)
Quarter: 2014Q2

REPORT INFORMATION
  Report Type: Spontaneous
  Country: US (occurrence: US)
  Receive Date: 20131009
  Receipt Date: 20140416
  Transmission Date: 20141212
  Serious: Yes (Other)
  Sender: FDA-Public Use
  Company Number: US-PFIZER INC-2013288877

PATIENT
  Age: 75 Year
  Sex: Male
  Weight: 72.56 kg

DRUGS (6)
  1. LYRICA [Suspect]
     Indication: SPINAL COLUMN STENOSIS
     Dosage: UNK
     Dates: start: 2013
  2. LYRICA [Suspect]
     Indication: NEURALGIA
     Dosage: 150 MG, 2X/DAY
     Dates: start: 20131119, end: 201401
  3. GABAPENTIN [Suspect]
     Indication: SPINAL COLUMN STENOSIS
     Dosage: 600 MG (BY TAKING 2 CAPSULES OF 300MG), 3X/DAY
     Route: 048
     Dates: start: 2010, end: 2013
  4. GABAPENTIN [Suspect]
     Indication: NEURALGIA
     Dosage: 300 MG, 8X/DAY
     Route: 048
     Dates: start: 201006, end: 201309
  5. GABAPENTIN [Suspect]
     Indication: NEURALGIA
  6. ACETAMINOPHEN [Concomitant]
     Indication: SPINAL COLUMN STENOSIS
     Dosage: UNK

REACTIONS (5)
  - Weight increased [Unknown]
  - Decreased activity [Unknown]
  - Dizziness [Unknown]
  - Dysstasia [Unknown]
  - Hypersomnia [Unknown]
